FAERS Safety Report 10015534 (Version 1)
Quarter: 2014Q1

REPORT INFORMATION
  Report Type: Spontaneous
  Country: BR (occurrence: BR)
  Receive Date: 20140317
  Receipt Date: 20140317
  Transmission Date: 20141002
  Serious: Yes (Other)
  Sender: FDA-Public Use
  Company Number: BR-PFIZER INC-2014069923

PATIENT
  Age: 68 Year
  Sex: Female
  Weight: 75 kg

DRUGS (5)
  1. XALATAN [Suspect]
     Indication: GLAUCOMA
     Dosage: 1 DROP IN EACH EYE, 1X/DAY
     Route: 047
     Dates: start: 2004
  2. XALATAN [Suspect]
     Dosage: 1 DROP IN EACH EYE, 1X/DAY
     Route: 047
     Dates: start: 2012, end: 20140307
  3. XALACOM [Suspect]
     Dosage: 1 DROP IN EACH EYE, 1X/DAY
     Route: 047
     Dates: start: 2004
  4. XALACOM [Suspect]
     Dosage: 1 DROP IN EACH EYE, 1X/DAY
     Route: 047
     Dates: start: 201403
  5. COMBIGAN [Concomitant]
     Indication: GLAUCOMA
     Dosage: 1 DROP IN THE RIGHT EYE, UNSPECIFIED FREQUENCY
     Route: 047
     Dates: start: 2012

REACTIONS (5)
  - Visual acuity reduced [Unknown]
  - Hypersensitivity [Unknown]
  - Eye disorder [Unknown]
  - Eye pain [Unknown]
  - Madarosis [Unknown]
